FAERS Safety Report 8476336-4 (Version None)
Quarter: 2012Q2

REPORT INFORMATION
  Report Type: 
  Country: None (occurrence: None)
  Receive Date: 20120619
  Receipt Date: 20120608
  Transmission Date: 20120825
  Serious: Yes (Hospitalization)
  Sender: FDA-Public Use
  Company Number: 2012SP031448

PATIENT
  Age: 63 Year
  Sex: Male

DRUGS (5)
  1. ALLOPURINOL [Suspect]
     Indication: GOUT
     Dosage: 300 MG;QD;PO
     Route: 048
     Dates: start: 20100801
  2. ENALAPRIL MALEATE [Suspect]
     Indication: HYPERTENSION
     Dosage: 10 MG;QD;PO
     Route: 048
     Dates: start: 20100801
  3. EZETIMIBE/SAMVASTATIN [Suspect]
     Indication: PRODUCT USED FOR UNKNOWN INDICATION
     Dosage: PO
     Route: 048
     Dates: start: 20110101, end: 20111101
  4. MIRTAZAPINE [Suspect]
     Indication: DEPRESSION
     Dates: start: 20110601, end: 20120417
  5. ATORVASTATIN CALCIUM [Suspect]
     Indication: DYSLIPIDAEMIA
     Dosage: 1 DF;QD;PO
     Route: 049
     Dates: start: 20111101, end: 20111222

REACTIONS (3)
  - BLOOD CREATINE PHOSPHOKINASE INCREASED [None]
  - DYSLIPIDAEMIA [None]
  - PARAESTHESIA [None]
